FAERS Safety Report 4485799-0 (Version None)
Quarter: 2004Q4

REPORT INFORMATION
  Report Type: 
  Country: None (occurrence: None)
  Receive Date: 20041026
  Receipt Date: 20041015
  Transmission Date: 20050328
  Serious: Yes (Hospitalization)
  Sender: FDA-Public Use
  Company Number: US-ROCHE-383685

PATIENT
  Age: 17 Year
  Sex: Male
  Weight: 63.5 kg

DRUGS (2)
  1. ACCUTANE [Suspect]
     Indication: ACNE
     Route: 048
     Dates: start: 20031215
  2. ACCUTANE [Suspect]
     Route: 048
     Dates: end: 20040415

REACTIONS (11)
  - APPENDICITIS [None]
  - DEPRESSION [None]
  - IMPAIRED HEALING [None]
  - INFLUENZA [None]
  - MONONUCLEOSIS SYNDROME [None]
  - MUSCLE CRAMP [None]
  - NASOPHARYNGITIS [None]
  - PALLOR [None]
  - SCOLIOSIS [None]
  - SINUSITIS [None]
  - SUICIDAL IDEATION [None]
